FAERS Safety Report 17373346 (Version 1)
Quarter: 2020Q1

REPORT INFORMATION
  Report Type: Spontaneous
  Country: NL (occurrence: NL)
  Receive Date: 20200206
  Receipt Date: 20200206
  Transmission Date: 20200409
  Serious: Yes (Other)
  Sender: FDA-Public Use
  Company Number: NL-TEVA-2020-NL-1181854

PATIENT
  Age: 57 Year
  Sex: Female
  Weight: 68 kg

DRUGS (3)
  1. NASONEX (MOMETASON) [Concomitant]
     Route: 065
  2. ROPINIROL [Suspect]
     Active Substance: ROPINIROLE
     Indication: RESTLESS LEGS SYNDROME
     Dosage: COATED TABLET, 0.25 MG (MILLIGRAM), 1 TIME PER DAY, 3 MG
     Dates: start: 20191104, end: 20191128
  3. HOESTBRUISTABLET HTP (ACETYLCYSTEINE) [Concomitant]
     Route: 065

REACTIONS (1)
  - Hallucination, visual [Recovered/Resolved]

NARRATIVE: CASE EVENT DATE: 20191118
